FAERS Safety Report 7631840 (Version 5)
Quarter: 2013Q4

REPORT INFORMATION
  Report Type: Spontaneous
  Country: US (occurrence: US)
  Receive Date: 20101018
  Receipt Date: 20131018
  Transmission Date: 20140711
  Serious: Yes (Death, Other)
  Sender: FDA-Public Use
  Company Number: US-JNJFOC-20101002599

PATIENT
  Age: 59 Year
  Sex: Male

DRUGS (9)
  1. REMICADE [Suspect]
     Indication: COLITIS ULCERATIVE
     Dosage: INITIAL DOSE
     Route: 042
     Dates: start: 20100918
  2. AZATHIOPRINE [Concomitant]
     Indication: COLITIS ULCERATIVE
     Dates: start: 2005
  3. STEROIDS NOS [Concomitant]
     Indication: COLITIS ULCERATIVE
  4. PENTASA [Concomitant]
     Indication: COLITIS ULCERATIVE
  5. PREDNISONE [Concomitant]
     Indication: CROHN^S DISEASE
     Route: 065
  6. PROTONIX [Concomitant]
     Indication: DYSPEPSIA
     Route: 065
  7. SOTALOL [Concomitant]
     Indication: ATRIAL FIBRILLATION
     Route: 065
  8. ASA [Concomitant]
     Route: 065
  9. FOLIC ACID [Concomitant]
     Route: 065

REACTIONS (6)
  - Intestinal perforation [Fatal]
  - Atrial fibrillation [Recovered/Resolved]
  - Pancytopenia [Unknown]
  - Intestinal adenocarcinoma [Not Recovered/Not Resolved]
  - Infusion related reaction [Not Recovered/Not Resolved]
  - Sepsis [Fatal]
